FAERS Safety Report 25704718 (Version 2)
Quarter: 2025Q3

REPORT INFORMATION
  Report Type: Spontaneous
  Country: US (occurrence: US)
  Receive Date: 20250820
  Receipt Date: 20250902
  Transmission Date: 20251021
  Serious: Yes (Life-Threatening, Hospitalization, Other)
  Sender: TEVA
  Company Number: US-TEVA-VS-3362797

PATIENT
  Age: 48 Year
  Sex: Male

DRUGS (6)
  1. HYDRALAZINE [Suspect]
     Active Substance: HYDRALAZINE HYDROCHLORIDE
     Indication: Secondary hypertension
     Route: 065
  2. TERAZOSIN [Suspect]
     Active Substance: TERAZOSIN HYDROCHLORIDE
     Indication: Secondary hypertension
     Route: 065
  3. METOPROLOL [Suspect]
     Active Substance: METOPROLOL
     Indication: Secondary hypertension
     Route: 065
  4. AMLODIPINE [Suspect]
     Active Substance: AMLODIPINE BESYLATE
     Indication: Secondary hypertension
     Route: 065
  5. LOSARTAN [Suspect]
     Active Substance: LOSARTAN
     Indication: Secondary hypertension
     Route: 065
  6. NICARDIPINE [Suspect]
     Active Substance: NICARDIPINE
     Indication: Secondary hypertension
     Route: 065

REACTIONS (3)
  - Hypertensive crisis [Unknown]
  - Rebound effect [Unknown]
  - Drug ineffective [Unknown]
